FAERS Safety Report 6793570-X (Version None)
Quarter: 2010Q2

REPORT INFORMATION
  Report Type: 
  Country: None (occurrence: None)
  Receive Date: 20100624
  Receipt Date: 20090105
  Transmission Date: 20101027
  Serious: Yes (Other)
  Sender: FDA-Public Use
  Company Number: US-PFIZER INC-2008150708

PATIENT
  Sex: Female

DRUGS (2)
  1. GEODON [Suspect]
     Indication: BIPOLAR DISORDER
     Dosage: 80 MG
  2. GEODON [Suspect]
     Dosage: 40 MG,
     Route: 048

REACTIONS (4)
  - CHILLS [None]
  - HYPERTENSION [None]
  - PYREXIA [None]
  - TREMOR [None]
